FAERS Safety Report 7905187-1 (Version None)
Quarter: 2011Q4

REPORT INFORMATION
  Report Type: 
  Country: None (occurrence: None)
  Receive Date: 20111109
  Receipt Date: 20111102
  Transmission Date: 20120403
  Serious: Yes (Other)
  Sender: FDA-Public Use
  Company Number: US-BAYER-2011-107407

PATIENT
  Age: 48 Year
  Sex: Female
  Weight: 61 kg

DRUGS (1)
  1. ALKA-SELTZER COLD FORMULA CHERRY BURST [Suspect]
     Indication: NASOPHARYNGITIS
     Dosage: 2 DF, BID
     Route: 048
     Dates: start: 20111101

REACTIONS (9)
  - DYSPNOEA [None]
  - LIP SWELLING [None]
  - NAUSEA [None]
  - PRURITUS [None]
  - SKIN WARM [None]
  - DIZZINESS [None]
  - URTICARIA [None]
  - HYPERSENSITIVITY [None]
  - SWELLING FACE [None]
